FAERS Safety Report 8905741 (Version 1)
Quarter: 2012Q4

REPORT INFORMATION
  Report Type: 
  Country: US (occurrence: US)
  Receive Date: 20121113
  Receipt Date: 20121113
  Transmission Date: 20130627
  Serious: Yes (Death, Hospitalization)
  Sender: FDA-Public Use
  Company Number: US-GLAXOSMITHKLINE-A0745302A

PATIENT
  Age: 62 Year
  Sex: Male
  Weight: 99.1 kg

DRUGS (6)
  1. AVANDIA [Suspect]
     Indication: TYPE 2 DIABETES MELLITUS
     Dosage: 4MG Variable dose
     Route: 048
     Dates: start: 200511, end: 200706
  2. DIABETA [Concomitant]
     Dates: start: 200512
  3. POTASSIUM [Concomitant]
  4. HYDRALAZINE [Concomitant]
  5. NORVASC [Concomitant]
  6. LIPITOR [Concomitant]

REACTIONS (4)
  - Death [Fatal]
  - Chest pain [Unknown]
  - Cardiovascular disorder [Unknown]
  - Musculoskeletal pain [Unknown]
